FAERS Safety Report 7130917-9 (Version None)
Quarter: 2010Q4

REPORT INFORMATION
  Report Type: 
  Country: None (occurrence: None)
  Receive Date: 20101101
  Receipt Date: 20100727
  Transmission Date: 20110411
  Serious: Yes (Other)
  Sender: FDA-Public Use
  Company Number: AMAG201000312

PATIENT
  Age: 75 Year
  Sex: Female
  Weight: 93 kg

DRUGS (14)
  1. FERAHEME [Suspect]
     Indication: IRON DEFICIENCY ANAEMIA
     Dosage: 510 MG, SINGLE, INTRAVENOUS
     Route: 042
     Dates: start: 20100629, end: 20100629
  2. ASPIRIN [Concomitant]
  3. ATENOLOL [Concomitant]
  4. LISINOPRIL (LISINOPRIL DIHYDRATE) [Concomitant]
  5. LASIX [Concomitant]
  6. PLAVIX [Concomitant]
  7. LIPITOR [Concomitant]
  8. LORATADINE [Concomitant]
  9. ZANTAC [Concomitant]
  10. DOXAZOSIN (DOXAZOSIN MESILATE) [Concomitant]
  11. CALCIUM + VITAMIN D (CALCIUM, COLECALCIFEROL) [Concomitant]
  12. ISOSORBIDE (ISOSORBIDE) [Concomitant]
  13. LOVAZA [Concomitant]
  14. FLAXSEED OIL (LINUM USITATISSIMUM SEED OIL) [Concomitant]

REACTIONS (2)
  - DIZZINESS [None]
  - HYPOTENSION [None]
